FAERS Safety Report 8557041-2 (Version None)
Quarter: 2012Q3

REPORT INFORMATION
  Report Type: 
  Country: None (occurrence: None)
  Receive Date: 20120801
  Receipt Date: 20120730
  Transmission Date: 20120928
  Serious: Yes (Other)
  Sender: FDA-Public Use
  Company Number: GB-ROCHE-1090508

PATIENT
  Age: 65 Year
  Sex: Female

DRUGS (5)
  1. CAPECITABINE [Suspect]
     Indication: BREAST NEOPLASM
     Route: 048
     Dates: start: 20120321
  2. LAPATINIB [Suspect]
     Dosage: DOSE REDUCED
  3. LAPATINIB [Suspect]
     Indication: BREAST NEOPLASM
     Route: 048
     Dates: start: 20120426
  4. LOPERAMIDE [Concomitant]
     Indication: DIARRHOEA
     Dates: start: 20120425
  5. CAPECITABINE [Suspect]
     Dosage: DOSE REDUCED
     Route: 048

REACTIONS (3)
  - DERMATITIS ACNEIFORM [None]
  - DRY SKIN [None]
  - QUALITY OF LIFE DECREASED [None]
